FAERS Safety Report 9380821 (Version 1)
Quarter: 2013Q3

REPORT INFORMATION
  Report Type: Other
  Country: FR (occurrence: FR)
  Receive Date: 20130702
  Receipt Date: 20130702
  Transmission Date: 20140515
  Serious: Yes (Hospitalization)
  Sender: FDA-Public Use
  Company Number: FR-RB-055541-13

PATIENT
  Sex: 0

DRUGS (1)
  1. BUPRENORPHINE UNSPECIFIED [Suspect]
     Indication: PRODUCT USED FOR UNKNOWN INDICATION
     Dosage: DOSING DETAILS UNKNOWN
     Route: 042

REACTIONS (2)
  - Intentional drug misuse [Unknown]
  - Extremity necrosis [Unknown]
